FAERS Safety Report 24814270 (Version 2)
Quarter: 2025Q1

REPORT INFORMATION
  Report Type: Spontaneous
  Country: FR (occurrence: FR)
  Receive Date: 20250107
  Receipt Date: 20250226
  Transmission Date: 20250408
  Serious: Yes (Hospitalization)
  Sender: RECORDATI
  Company Number: FR-RECORDATI RARE DISEASE INC.-2024010411

PATIENT

DRUGS (1)
  1. ISTURISA [Suspect]
     Active Substance: OSILODROSTAT PHOSPHATE
     Indication: Adrenocortical carcinoma
     Dosage: 20 MG, BID, 2 TABLETS IN MORNING AND 2 TABLETS IN EVENING
     Dates: end: 20241230

REACTIONS (1)
  - Hospitalisation [Unknown]
